FAERS Safety Report 16379552 (Version 1)
Quarter: 2019Q2

REPORT INFORMATION
  Report Type: Spontaneous
  Country: FR (occurrence: FR)
  Receive Date: 20190531
  Receipt Date: 20190531
  Transmission Date: 20190711
  Serious: Yes (Other)
  Sender: FDA-Public Use
  Company Number: FR-MYLANLABS-2019M1050828

PATIENT
  Age: 53 Year
  Sex: Male

DRUGS (14)
  1. OLANZAPINE. [Suspect]
     Active Substance: OLANZAPINE
     Dosage: 20 MILLIGRAM, QD
     Route: 048
     Dates: start: 20141022
  2. HALDOL [Suspect]
     Active Substance: HALOPERIDOL
     Indication: BIPOLAR DISORDER
     Dosage: DOSAGE FORM: SOLUTION, 15-15-30 DROPS PER DAY
     Route: 048
     Dates: start: 20141022
  3. MICROLAX                           /00285401/ [Concomitant]
     Indication: PRODUCT USED FOR UNKNOWN INDICATION
     Dosage: DOSAGE FORM: UNSPECIFIED
     Route: 065
  4. DEPAKOTE [Concomitant]
     Active Substance: DIVALPROEX SODIUM
     Indication: PRODUCT USED FOR UNKNOWN INDICATION
     Dosage: DOSAGE FORM: UNSPECIFIED
     Route: 065
  5. PARACETAMOL [Concomitant]
     Active Substance: ACETAMINOPHEN
     Indication: PRODUCT USED FOR UNKNOWN INDICATION
     Dosage: DOSAGE FORM: UNSPECIFIED
     Route: 065
  6. OLANZAPINE. [Suspect]
     Active Substance: OLANZAPINE
     Dosage: 20 MILLIGRAM, QD (1-0-0)
     Route: 048
  7. LEPTICUR [Concomitant]
     Active Substance: TROPATEPINE HYDROCHLORIDE
     Indication: PRODUCT USED FOR UNKNOWN INDICATION
     Dosage: DOSAGE FORM: UNSPECIFIED
     Route: 065
  8. IMOVANE [Concomitant]
     Active Substance: ZOPICLONE
     Indication: PRODUCT USED FOR UNKNOWN INDICATION
     Dosage: DOSAGE FORM: UNSPECIFIED
     Route: 065
  9. LOXAPAC                            /00401801/ [Suspect]
     Active Substance: LOXAPINE
     Indication: BIPOLAR DISORDER
     Dosage: 140 GTT DROPS, QD
     Route: 048
  10. TRAMADOL. [Suspect]
     Active Substance: TRAMADOL
     Indication: PAIN
     Dosage: 50 MG THREE TIMES A DAY
     Route: 048
  11. OLANZAPINE. [Suspect]
     Active Substance: OLANZAPINE
     Indication: BIPOLAR DISORDER
     Dosage: 25 MILLIGRAM, QD
     Route: 048
     Dates: start: 20141014
  12. THERALENE [Suspect]
     Active Substance: TRIMEPRAZINE
     Indication: BIPOLAR DISORDER
     Dosage: DOSAGE FORM: UNSPECIFIED
     Route: 048
     Dates: start: 20141022
  13. FORLAX [Concomitant]
     Active Substance: POLYETHYLENE GLYCOL 4000
     Indication: PRODUCT USED FOR UNKNOWN INDICATION
     Dosage: DOSAGE FORM: UNSPECIFIED
     Route: 065
  14. STERCULIA URENS [Concomitant]
     Indication: PRODUCT USED FOR UNKNOWN INDICATION
     Dosage: DOSAGE FORM: UNSPECIFIED
     Route: 065

REACTIONS (5)
  - Faecaloma [Recovered/Resolved]
  - Intestinal obstruction [Recovered/Resolved]
  - Nausea [Unknown]
  - Vomiting [Unknown]
  - Constipation [Recovered/Resolved]

NARRATIVE: CASE EVENT DATE: 20141024
